FAERS Safety Report 23516990 (Version 6)
Quarter: 2024Q3

REPORT INFORMATION
  Report Type: Spontaneous
  Country: GR (occurrence: GR)
  Receive Date: 20240213
  Receipt Date: 20240912
  Transmission Date: 20241017
  Serious: No
  Sender: PFIZER
  Company Number: GR-PFIZER INC-PV202400009405

PATIENT
  Age: 13 Year
  Sex: Male
  Weight: 60 kg

DRUGS (1)
  1. GENOTROPIN [Suspect]
     Active Substance: SOMATROPIN
     Indication: Growth hormone deficiency
     Dosage: 1.6MG X 2 DAYS, 1.4MG X 4 DAYS AND 1 DAY OFF / 6 DAYS / 12 MG PEN
     Route: 058
     Dates: start: 202306

REACTIONS (2)
  - Drug dose omission by device [Unknown]
  - Device leakage [Unknown]

NARRATIVE: CASE EVENT DATE: 20240101
